FAERS Safety Report 4600642-4 (Version None)
Quarter: 2005Q1

REPORT INFORMATION
  Report Type: 
  Country: None (occurrence: None)
  Receive Date: 20050127
  Receipt Date: 20041118
  Transmission Date: 20050727
  Serious: No
  Sender: FDA-Public Use
  Company Number: USA041184103

PATIENT
  Age: 17 Month
  Sex: Female
  Weight: 13 kg

DRUGS (1)
  1. STRATTERA [Suspect]
     Dosage: 60 MG

REACTIONS (1)
  - ACCIDENTAL OVERDOSE [None]
